FAERS Safety Report 7736446-3 (Version None)
Quarter: 2011Q3

REPORT INFORMATION
  Report Type: 
  Country: None (occurrence: None)
  Receive Date: 20110908
  Receipt Date: 20110901
  Transmission Date: 20111222
  Serious: Yes (Other)
  Sender: FDA-Public Use
  Company Number: US-BRISTOL-MYERS SQUIBB COMPANY-15916810

PATIENT
  Age: 24 Year
  Sex: Female

DRUGS (5)
  1. LAMICTAL [Suspect]
     Indication: DEPRESSION
  2. PRISTIQ [Suspect]
     Indication: MAJOR DEPRESSION
  3. LAMICTAL [Suspect]
     Indication: MIGRAINE
  4. MAXALT [Concomitant]
  5. ABILIFY [Suspect]
     Indication: DEPRESSION
     Dosage: STARTED WITH 2MG ABND INCREASED TO 3MG ON 07JUL2011
     Dates: start: 20110623, end: 20110701

REACTIONS (2)
  - WRONG TECHNIQUE IN DRUG USAGE PROCESS [None]
  - VISUAL ACUITY REDUCED [None]
